FAERS Safety Report 10408645 (Version 1)
Quarter: 2014Q3

REPORT INFORMATION
  Report Type: Spontaneous
  Country: GB (occurrence: None)
  Receive Date: 20140821
  Receipt Date: 20140821
  Transmission Date: 20150326
  Serious: Yes (Life-Threatening, Hospitalization, Disabling, Other)
  Sender: FDA-Public Use
  Company Number: AUR-APL-2014-08651

PATIENT
  Age: 43 Year
  Sex: Male
  Weight: 103 kg

DRUGS (3)
  1. OMEPRAZOLE (OMEPRAZOLE) [Concomitant]
     Active Substance: OMEPRAZOLE
  2. FLUOXETINE [Suspect]
     Active Substance: FLUOXETINE\FLUOXETINE HYDROCHLORIDE
     Indication: CHRONIC FATIGUE SYNDROME
     Route: 048
     Dates: start: 20140715, end: 20140724
  3. LISINOPRIL (LISINOPRIL) [Concomitant]
     Active Substance: LISINOPRIL

REACTIONS (4)
  - Suicidal ideation [None]
  - Anxiety [None]
  - Depression [None]
  - Akathisia [None]

NARRATIVE: CASE EVENT DATE: 20140720
